FAERS Safety Report 23504923 (Version 1)
Quarter: 2024Q1

REPORT INFORMATION
  Report Type: Spontaneous
  Country: GB (occurrence: GB)
  Receive Date: 20240209
  Receipt Date: 20240209
  Transmission Date: 20240410
  Serious: No
  Sender: FDA-Public Use
  Company Number: None

PATIENT
  Age: 76 Year
  Sex: Male

DRUGS (1)
  1. GABAPENTIN [Suspect]
     Active Substance: GABAPENTIN
     Indication: Analgesic therapy
     Dosage: 100 MILLIGRAM, TID (3X100MG), HARD CAPSULES (3 X 100MG), HARD CAPSULES)
     Route: 065

REACTIONS (2)
  - Off label use [Unknown]
  - Therapeutic response changed [Unknown]
